FAERS Safety Report 4344864-9 (Version None)
Quarter: 2004Q2

REPORT INFORMATION
  Report Type: 
  Country: None (occurrence: None)
  Receive Date: 20040423
  Receipt Date: 20030922
  Transmission Date: 20050107
  Serious: No
  Sender: FDA-Public Use
  Company Number: US-GLAXOSMITHKLINE-A0426909A

PATIENT
  Age: 32 Year
  Sex: Female

DRUGS (8)
  1. ZOFRAN [Suspect]
     Dosage: 4MG SINGLE DOSE
     Route: 042
     Dates: start: 20030922, end: 20030922
  2. OXYTOCIN [Concomitant]
     Route: 065
     Dates: start: 20030922, end: 20030922
  3. ANCEF [Concomitant]
     Route: 065
     Dates: start: 20030922, end: 20030922
  4. EPHEDRINE [Concomitant]
     Dosage: 50MG PER DAY
     Route: 065
     Dates: start: 20030922, end: 20030922
  5. LABETALOL HCL [Concomitant]
     Dosage: 10MG PER DAY
     Route: 065
     Dates: start: 20030922, end: 20030922
  6. ATROPINE [Concomitant]
     Dosage: .4MG PER DAY
     Route: 065
     Dates: start: 20030922, end: 20030922
  7. BUPIVACAINE [Concomitant]
     Dosage: 12MG PER DAY
     Route: 008
     Dates: start: 20030922, end: 20030922
  8. FENTANYL [Concomitant]
     Dosage: 10MCG PER DAY
     Route: 008
     Dates: start: 20030922, end: 20030922

REACTIONS (1)
  - DYSTONIA [None]
